FAERS Safety Report 14025862 (Version 2)
Quarter: 2017Q4

REPORT INFORMATION
  Report Type: Spontaneous
  Country: JP (occurrence: JP)
  Receive Date: 20170929
  Receipt Date: 20171120
  Transmission Date: 20180321
  Serious: Yes (Life-Threatening)
  Sender: FDA-Public Use
  Company Number: JP-GUERBET-JP-20170167

PATIENT
  Age: 82 Year
  Sex: Male

DRUGS (3)
  1. OMNIPAQUE [Suspect]
     Active Substance: IOHEXOL
     Indication: ANGIOGRAM
     Route: 013
     Dates: start: 20170912, end: 20170912
  2. EPIRUBICIN [Suspect]
     Active Substance: EPIRUBICIN
     Indication: TRANSCATHETER ARTERIAL CHEMOEMBOLISATION
     Route: 013
     Dates: start: 20170912, end: 20170912
  3. LIPIODOL [Suspect]
     Active Substance: ETHIODIZED OIL
     Indication: TRANSCATHETER ARTERIAL CHEMOEMBOLISATION
     Route: 013
     Dates: start: 20170912, end: 20170912

REACTIONS (1)
  - Anaphylactic shock [Recovered/Resolved]

NARRATIVE: CASE EVENT DATE: 20170912
